FAERS Safety Report 19063149 (Version 1)
Quarter: 2021Q1

REPORT INFORMATION
  Report Type: Spontaneous
  Country: US (occurrence: US)
  Receive Date: 20210325
  Receipt Date: 20210325
  Transmission Date: 20210420
  Serious: No
  Sender: FDA-Public Use
  Company Number: None

PATIENT
  Age: 38 Year
  Sex: Male

DRUGS (1)
  1. AMBRISENTAN 10MG TABLETS [Suspect]
     Active Substance: AMBRISENTAN
     Indication: PULMONARY HYPERTENSION
     Route: 048
     Dates: start: 20201027

REACTIONS (3)
  - Headache [None]
  - Pain in jaw [None]
  - Abdominal discomfort [None]

NARRATIVE: CASE EVENT DATE: 20210324
